FAERS Safety Report 6485950-7 (Version None)
Quarter: 2009Q4

REPORT INFORMATION
  Report Type: 
  Country: None (occurrence: None)
  Receive Date: 20091204
  Receipt Date: 20091123
  Transmission Date: 20100525
  Serious: No
  Sender: FDA-Public Use
  Company Number: OPER20090195

PATIENT
  Age: 48 Year
  Sex: Female
  Weight: 127.0072 kg

DRUGS (9)
  1. OPANA ER [Suspect]
     Indication: BACK PAIN
     Dosage: ORAL
     Route: 048
  2. PERCOCET [Suspect]
     Indication: DRUG USE FOR UNKNOWN INDICATION
     Dosage: ORAL
     Route: 048
  3. ZYVOX [Suspect]
     Indication: DRUG USE FOR UNKNOWN INDICATION
  4. DIFLUCAN [Suspect]
     Indication: DRUG USE FOR UNKNOWN INDICATION
  5. DOXYCYCLINE [Suspect]
     Indication: DRUG USE FOR UNKNOWN INDICATION
  6. SULFAMETHAZINE (SULFADIMIDINE) [Suspect]
     Indication: DRUG USE FOR UNKNOWN INDICATION
  7. FLEXERIL [Suspect]
     Indication: DRUG USE FOR UNKNOWN INDICATION
  8. ALPRAZOLAM [Suspect]
     Indication: DRUG USE FOR UNKNOWN INDICATION
  9. ZOFRAN [Suspect]
     Indication: DRUG USE FOR UNKNOWN INDICATION

REACTIONS (3)
  - NAUSEA [None]
  - OEDEMA PERIPHERAL [None]
  - VOMITING [None]
